FAERS Safety Report 20210268 (Version 1)
Quarter: 2021Q4

REPORT INFORMATION
  Report Type: Spontaneous
  Country: DE (occurrence: DE)
  Receive Date: 20211221
  Receipt Date: 20211221
  Transmission Date: 20220303
  Serious: Yes (Hospitalization)
  Sender: FDA-Public Use
  Company Number: DE-NOVARTISPH-NVSC2021DE286207

PATIENT
  Age: 24 Year
  Sex: Female

DRUGS (1)
  1. ETANERCEPT [Suspect]
     Active Substance: ETANERCEPT
     Indication: Product used for unknown indication
     Dosage: 1 DOSAGE FORM, QW (EINMAL WOCHENTLICH, INJEKTIONS-/INFUSIONSLOSUNG)
     Route: 058

REACTIONS (4)
  - Dysuria [Recovering/Resolving]
  - Flank pain [Recovering/Resolving]
  - Pyelonephritis [Recovering/Resolving]
  - Pyrexia [Recovering/Resolving]
